FAERS Safety Report 8535887-4 (Version None)
Quarter: 2012Q3

REPORT INFORMATION
  Report Type: 
  Country: None (occurrence: None)
  Receive Date: 20120725
  Receipt Date: 20120719
  Transmission Date: 20120928
  Serious: Yes (Other)
  Sender: FDA-Public Use
  Company Number: PHHY2012BR062769

PATIENT
  Age: 85 Year
  Sex: Female

DRUGS (1)
  1. EXELON [Suspect]
     Dosage: 9MG/5CM2, UNK
     Route: 062

REACTIONS (4)
  - BRADYCARDIA [None]
  - SHOCK [None]
  - ATRIAL FIBRILLATION [None]
  - MALAISE [None]
